FAERS Safety Report 6642819-2 (Version None)
Quarter: 2010Q1

REPORT INFORMATION
  Report Type: 
  Country: None (occurrence: None)
  Receive Date: 20100319
  Receipt Date: 20100310
  Transmission Date: 20100710
  Serious: Yes (Hospitalization)
  Sender: FDA-Public Use
  Company Number: US-ELI_LILLY_AND_COMPANY-US200906005622

PATIENT
  Sex: Female
  Weight: 79.819 kg

DRUGS (14)
  1. BYETTA [Suspect]
     Dosage: UNK, UNKNOWN
     Dates: start: 20060701, end: 20060901
  2. MECLIZINE [Concomitant]
     Dosage: 25 MG, DAILY (1/D)
     Route: 048
  3. NEURONTIN [Concomitant]
     Dosage: 300 MG, 3/D
  4. QUININE SULFATE [Concomitant]
     Dosage: UNK, UNKNOWN
  5. XANAX [Concomitant]
     Dosage: 1 MG, 3/D
     Route: 048
  6. SYNTHROID [Concomitant]
     Dosage: 300 UG, DAILY (1/D)
  7. INSULIN [Concomitant]
     Dosage: UNK, UNKNOWN
  8. LEXAPRO [Concomitant]
     Dosage: UNK, UNKNOWN
  9. ATENOLOL [Concomitant]
     Dosage: UNK, UNKNOWN
  10. ASPIRIN [Concomitant]
     Dosage: UNK, UNKNOWN
  11. FERROUS SULFATE TAB [Concomitant]
     Dosage: UNK, UNKNOWN
  12. VYTORIN [Concomitant]
     Dosage: UNK, UNKNOWN
  13. ANTIBIOTICS [Concomitant]
     Dosage: UNK, UNKNOWN
     Dates: start: 20060101
  14. ORAL ANTIDIABETICS [Concomitant]
     Dosage: UNK, UNKNOWN

REACTIONS (3)
  - GENERAL PHYSICAL HEALTH DETERIORATION [None]
  - PANCREATITIS ACUTE [None]
  - RENAL INJURY [None]
